FAERS Safety Report 17570628 (Version 3)
Quarter: 2020Q2

REPORT INFORMATION
  Report Type: Report from Study
  Country: US (occurrence: US)
  Receive Date: 20200323
  Receipt Date: 20200421
  Transmission Date: 20200713
  Serious: Yes (Other)
  Sender: FDA-Public Use
  Company Number: NVSC2020US081114

PATIENT
  Sex: Female

DRUGS (1)
  1. PIQRAY [Suspect]
     Active Substance: ALPELISIB
     Indication: PRODUCT USED FOR UNKNOWN INDICATION
     Route: 048

REACTIONS (9)
  - Oropharyngeal discomfort [Unknown]
  - Rash [Unknown]
  - Constipation [Unknown]
  - Ear pain [Unknown]
  - Hypersensitivity [Unknown]
  - Barrett^s oesophagus [Unknown]
  - Pharyngeal hypoaesthesia [Unknown]
  - Fatigue [Unknown]
  - Lymphadenopathy [Unknown]
